FAERS Safety Report 9575382 (Version 1)
Quarter: 2013Q4

REPORT INFORMATION
  Report Type: Spontaneous
  Country: US (occurrence: US)
  Receive Date: 20131001
  Receipt Date: 20131001
  Transmission Date: 20140711
  Serious: No
  Sender: FDA-Public Use
  Company Number: US-AMGEN-USASP2013001818

PATIENT
  Sex: Female
  Weight: 84.35 kg

DRUGS (8)
  1. ENBREL [Suspect]
     Indication: RHEUMATOID ARTHRITIS
     Dosage: 50 MG, QWK
     Route: 058
  2. PREDNISONE [Concomitant]
     Dosage: 1 MG, UNK
  3. ALENDRONATE [Concomitant]
     Dosage: 10 MG, UNK
  4. OMEPRAZOLE [Concomitant]
     Dosage: 40 MG, UNK
  5. QUININE SULPHATE [Concomitant]
     Dosage: 325 MG, UNK
  6. ALBUTEROL                          /00139501/ [Concomitant]
     Dosage: 0.083 %, UNK
  7. OSTEO                              /00751501/ [Concomitant]
     Dosage: UNK
  8. PULMICORT [Concomitant]
     Dosage: O.25MG/2

REACTIONS (3)
  - Nausea [Unknown]
  - Insomnia [Unknown]
  - Respiratory tract infection [Unknown]
